FAERS Safety Report 16982725 (Version 1)
Quarter: 2019Q4

REPORT INFORMATION
  Report Type: Other
  Country: ES (occurrence: ES)
  Receive Date: 20191101
  Receipt Date: 20191101
  Transmission Date: 20200122
  Serious: Yes (Other)
  Sender: FDA-Public Use
  Company Number: ES-APTAPHARMA INC.-2076322

PATIENT
  Age: 54 Year
  Sex: Female

DRUGS (1)
  1. IBUPROFEN ORAL [Suspect]
     Active Substance: IBUPROFEN
     Indication: DERMATITIS ATOPIC
     Route: 065

REACTIONS (4)
  - Dermatitis atopic [Unknown]
  - Angioedema [Recovered/Resolved]
  - Necrotising fasciitis [Unknown]
  - Angioedema [Unknown]
